FAERS Safety Report 7166823-3 (Version None)
Quarter: 2010Q4

REPORT INFORMATION
  Report Type: 
  Country: None (occurrence: None)
  Receive Date: 20101213
  Receipt Date: 20101213
  Transmission Date: 20110411
  Serious: Yes (Hospitalization)
  Sender: FDA-Public Use
  Company Number: None

PATIENT
  Age: 31 Year
  Sex: Male
  Weight: 138.3471 kg

DRUGS (1)
  1. HALDOL [Suspect]
     Dosage: 5MG 1 EVERY 12 HOURS PO
     Route: 048
     Dates: start: 20090115, end: 20090128

REACTIONS (7)
  - CARDIAC DISORDER [None]
  - DROOLING [None]
  - DYSPHAGIA [None]
  - FALL [None]
  - INTENTIONAL OVERDOSE [None]
  - MUSCULOSKELETAL STIFFNESS [None]
  - SUICIDE ATTEMPT [None]
